FAERS Safety Report 9664401 (Version 2)
Quarter: 2013Q4

REPORT INFORMATION
  Report Type: Spontaneous
  Country: BR (occurrence: BR)
  Receive Date: 20131101
  Receipt Date: 20131101
  Transmission Date: 20140711
  Serious: Yes (Other)
  Sender: FDA-Public Use
  Company Number: BR-PFIZER INC-2013285130

PATIENT
  Age: 39 Year
  Sex: Female

DRUGS (3)
  1. LYRICA [Suspect]
     Indication: FIBROMYALGIA
     Dosage: 75 MG, 2X/DAY (EVERY 12 HOURS)
     Dates: start: 201307, end: 201310
  2. RIVOTRIL [Concomitant]
     Indication: DEPRESSION
     Dosage: UBK
  3. LITHIUM [Concomitant]
     Indication: DEPRESSION
     Dosage: UNK

REACTIONS (5)
  - General physical condition abnormal [Unknown]
  - Pain [Unknown]
  - Weight increased [Not Recovered/Not Resolved]
  - Acne [Not Recovered/Not Resolved]
  - Malaise [Not Recovered/Not Resolved]
